FAERS Safety Report 10889938 (Version 1)
Quarter: 2015Q1

REPORT INFORMATION
  Report Type: Spontaneous
  Country: US (occurrence: US)
  Receive Date: 20150305
  Receipt Date: 20150305
  Transmission Date: 20150721
  Serious: Yes (Death)
  Sender: FDA-Public Use
  Company Number: US-BANPHARM-20153597

PATIENT
  Age: 54 Year
  Sex: Male

DRUGS (4)
  1. DIPHENHYDRAMINE UNKNOWN PRODUCT [Suspect]
     Active Substance: DIPHENHYDRAMINE
  2. METHADONE [Suspect]
     Active Substance: METHADONE HYDROCHLORIDE
  3. TEMAZEPAM. [Suspect]
     Active Substance: TEMAZEPAM
  4. ETHANOL [Suspect]
     Active Substance: ALCOHOL

REACTIONS (2)
  - Exposure via ingestion [None]
  - Completed suicide [Fatal]
